FAERS Safety Report 16870305 (Version 1)
Quarter: 2019Q3

REPORT INFORMATION
  Report Type: Report from Study
  Country: US (occurrence: US)
  Receive Date: 20190930
  Receipt Date: 20190930
  Transmission Date: 20191005
  Serious: No
  Sender: FDA-Public Use
  Company Number: PHEH2019US038903

PATIENT
  Age: 48 Year

DRUGS (1)
  1. COSENTYX [Suspect]
     Active Substance: SECUKINUMAB
     Indication: PSORIASIS
     Dosage: UNK
     Route: 065

REACTIONS (5)
  - Rhinorrhoea [Unknown]
  - Anosmia [Unknown]
  - Abscess [Unknown]
  - Cough [Unknown]
  - Asthenia [Unknown]
